FAERS Safety Report 11215524 (Version 2)
Quarter: 2015Q3

REPORT INFORMATION
  Report Type: Spontaneous
  Country: US (occurrence: US)
  Receive Date: 20150624
  Receipt Date: 20150812
  Transmission Date: 20151125
  Serious: Yes (Hospitalization)
  Sender: FDA-Public Use
  Company Number: US-PFIZER INC-2015203275

PATIENT
  Age: 44 Year
  Sex: Female

DRUGS (1)
  1. CELEBREX [Suspect]
     Active Substance: CELECOXIB
     Indication: OSTEOARTHRITIS
     Dosage: 200 MG, 1X/DAY
     Dates: start: 2013, end: 20150614

REACTIONS (9)
  - Pancreatic enlargement [Unknown]
  - Cardiac disorder [Unknown]
  - Feeding disorder [Not Recovered/Not Resolved]
  - Colitis [Not Recovered/Not Resolved]
  - Renal disorder [Unknown]
  - Gastrointestinal obstruction [Not Recovered/Not Resolved]
  - Bacterial infection [Unknown]
  - Weight decreased [Unknown]
  - Dyspepsia [Unknown]

NARRATIVE: CASE EVENT DATE: 2015
